FAERS Safety Report 6897233-1 (Version None)
Quarter: 2010Q3

REPORT INFORMATION
  Report Type: 
  Country: None (occurrence: None)
  Receive Date: 20100802
  Receipt Date: 20070420
  Transmission Date: 20110219
  Serious: Yes (Other)
  Sender: FDA-Public Use
  Company Number: US-PFIZER INC-2007032328

PATIENT
  Age: 32 Year
  Sex: Female

DRUGS (3)
  1. LYRICA [Suspect]
  2. PAXIL [Concomitant]
  3. MOTRIN [Concomitant]

REACTIONS (1)
  - WEIGHT INCREASED [None]
